FAERS Safety Report 9452430 (Version 1)
Quarter: 2013Q3

REPORT INFORMATION
  Report Type: Report from Study
  Country: CA (occurrence: CA)
  Receive Date: 20130812
  Receipt Date: 20130812
  Transmission Date: 20140515
  Serious: Yes (Other)
  Sender: FDA-Public Use
  Company Number: CA-JNJFOC-20130801345

PATIENT
  Age: 49 Year
  Sex: Male
  Weight: 53.57 kg

DRUGS (1)
  1. REMICADE [Suspect]
     Indication: PSORIASIS
     Route: 042
     Dates: start: 20070820

REACTIONS (2)
  - Diabetes mellitus [Unknown]
  - Cough [Recovered/Resolved]
